FAERS Safety Report 8278761-3 (Version None)
Quarter: 2012Q2

REPORT INFORMATION
  Report Type: 
  Country: None (occurrence: None)
  Receive Date: 20120412
  Receipt Date: 20110826
  Transmission Date: 20120825
  Serious: Yes (Hospitalization)
  Sender: FDA-Public Use
  Company Number: US-ASTRAZENECA-2011SE47276

PATIENT
  Age: 78 Year
  Sex: Female

DRUGS (5)
  1. PRILOSEC OTC [Suspect]
     Route: 048
  2. NEXIUM [Suspect]
     Route: 048
  3. CALCIUM WITH VITAMIN [Suspect]
     Route: 065
  4. RANITIDINE [Suspect]
     Route: 065
  5. CALCIUM CARBONATE [Suspect]
     Route: 065

REACTIONS (4)
  - MEMORY IMPAIRMENT [None]
  - DYSPEPSIA [None]
  - OSTEOPOROSIS [None]
  - BONE DISORDER [None]
